FAERS Safety Report 6912048-3 (Version None)
Quarter: 2010Q3

REPORT INFORMATION
  Report Type: 
  Country: None (occurrence: None)
  Receive Date: 20100806
  Receipt Date: 20071115
  Transmission Date: 20110219
  Serious: No
  Sender: FDA-Public Use
  Company Number: US-PFIZER INC-2007097171

PATIENT
  Sex: Female

DRUGS (1)
  1. CYTOTEC [Suspect]
     Route: 067

REACTIONS (1)
  - OFF LABEL USE [None]
